FAERS Safety Report 24126466 (Version 1)
Quarter: 2024Q3

REPORT INFORMATION
  Report Type: Spontaneous
  Country: US (occurrence: US)
  Receive Date: 20240723
  Receipt Date: 20240723
  Transmission Date: 20241016
  Serious: Yes (Other)
  Sender: ABBVIE
  Company Number: US-ALLERGAN-2128650US

PATIENT
  Age: 36 Year
  Sex: Female
  Weight: 161 kg

DRUGS (1)
  1. LILETTA [Suspect]
     Active Substance: LEVONORGESTREL
     Indication: Contraception
     Dosage: TIME INTERVAL: AS NECESSARY: DURATION 3 MONTH
     Route: 015
     Dates: start: 20210315, end: 20210712

REACTIONS (3)
  - Device dislocation [Recovered/Resolved with Sequelae]
  - Uterine perforation [Recovered/Resolved with Sequelae]
  - Complication associated with device [Unknown]

NARRATIVE: CASE EVENT DATE: 20210101
